FAERS Safety Report 8963779 (Version 3)
Quarter: 2012Q4

REPORT INFORMATION
  Report Type: 
  Country: JP (occurrence: JP)
  Receive Date: 20121214
  Receipt Date: 20121231
  Transmission Date: 20130627
  Serious: Yes (Other)
  Sender: FDA-Public Use
  Company Number: JP-009507513-1212JPN004765

PATIENT
  Age: 66 Year
  Sex: Female
  Weight: 56 kg

DRUGS (6)
  1. REBETOL [Suspect]
     Indication: CHRONIC HEPATITIS C
     Dosage: 400 mg, qd
     Route: 048
     Dates: start: 20121109, end: 20121121
  2. REBETOL [Suspect]
     Dosage: 200 mg, qd
     Route: 048
     Dates: start: 20121213
  3. PEGINTRON [Suspect]
     Indication: CHRONIC HEPATITIS C
     Dosage: 0.7 Microgram per kilogram, UNK
     Route: 058
     Dates: start: 20121109, end: 20121116
  4. PEGINTRON [Suspect]
     Dosage: 0.7 Microgram per kilogram, qw
     Route: 058
     Dates: start: 20121213
  5. TELAVIC [Suspect]
     Indication: CHRONIC HEPATITIS C
     Dosage: 1500 mg, qd
     Route: 048
     Dates: start: 20121109, end: 20121121
  6. TELAVIC [Suspect]
     Dosage: 1500 mg, qd
     Route: 048
     Dates: start: 20121213

REACTIONS (1)
  - Platelet count decreased [Recovered/Resolved]
